FAERS Safety Report 14204169 (Version 6)
Quarter: 2022Q1

REPORT INFORMATION
  Report Type: Report from Study
  Country: GB (occurrence: None)
  Receive Date: 20171120
  Receipt Date: 20220111
  Transmission Date: 20220423
  Serious: Yes (Hospitalization)
  Sender: FDA-Public Use
  Company Number: GB-ROCHE-2025737

PATIENT
  Age: 53 Year
  Sex: Male
  Weight: 117 kg

DRUGS (22)
  1. POLATUZUMAB VEDOTIN [Suspect]
     Active Substance: POLATUZUMAB VEDOTIN
     Indication: Follicular lymphoma
     Dosage: 1.4 OR 1.8 MG/KG ON DAY 1 OF EACH 28 DAY CYCLE FOR UP TO 6 MONTHS?MOST RECENT DOSE PRIOR TO SAE: 25/
     Route: 042
     Dates: start: 20170928
  2. OBINUTUZUMAB [Suspect]
     Active Substance: OBINUTUZUMAB
     Indication: Follicular lymphoma
     Dosage: ON DAYS 1, 8 AND 15 OF CYCLE 1 AND ON DAY 1 OF CYCLES 2 TO 6?MOST RECENT DOSE PRIOR TO SAE: 25/OCT/2
     Route: 042
     Dates: start: 20170927
  3. LENALIDOMIDE [Suspect]
     Active Substance: LENALIDOMIDE
     Indication: Follicular lymphoma
     Dosage: 10, 15 OR 20 MG ON DAYS 1 TO 21 OF EACH 28-DAY CYCLE FOR UP TO 6 CYCLES?MOST RECENT DOSE PRIOR TO SA
     Route: 048
     Dates: start: 20170927
  4. MORPHINE SULFATE [Concomitant]
     Active Substance: MORPHINE SULFATE
     Indication: Pain
  5. FEXOFENADINE [Concomitant]
     Active Substance: FEXOFENADINE HYDROCHLORIDE
     Indication: Rash
  6. FLUCONAZOLE [Concomitant]
     Active Substance: FLUCONAZOLE
  7. METOCLOPRAMIDE [Concomitant]
     Active Substance: METOCLOPRAMIDE
     Dates: start: 20170927
  8. RANITIDINE [Concomitant]
     Active Substance: RANITIDINE
     Dates: start: 20170927
  9. LOPERAMIDE [Concomitant]
     Active Substance: LOPERAMIDE
     Indication: Diarrhoea
     Dates: start: 20170927
  10. FILGRASTIM [Concomitant]
     Active Substance: FILGRASTIM
     Indication: Neutrophil count decreased
     Dates: start: 20171010
  11. SULFAMETHOXAZOLE\TRIMETHOPRIM [Concomitant]
     Active Substance: SULFAMETHOXAZOLE\TRIMETHOPRIM
     Dates: start: 20170926
  12. ACYCLOVIR [Concomitant]
     Active Substance: ACYCLOVIR
     Dates: start: 20170926
  13. FRAGMIN [Concomitant]
     Active Substance: DALTEPARIN SODIUM
     Dates: start: 20180117
  14. CYCLOPHOSPHAMIDE\DOXORUBICIN\PREDNISONE\VINCRISTINE [Concomitant]
     Active Substance: CYCLOPHOSPHAMIDE\DOXORUBICIN\PREDNISONE\VINCRISTINE
     Indication: Neoplasm malignant
     Dates: start: 20180222, end: 20210315
  15. RITUXIMAB [Concomitant]
     Active Substance: RITUXIMAB
     Indication: Neoplasm malignant
     Route: 065
     Dates: start: 20180222, end: 20210315
  16. RITUXIMAB [Concomitant]
     Active Substance: RITUXIMAB
     Dates: start: 20180410, end: 20180410
  17. CISPLATIN\CYTARABINE\DEXAMETHASONE [Concomitant]
     Active Substance: CISPLATIN\CYTARABINE\DEXAMETHASONE
     Indication: Neoplasm malignant
     Dates: start: 20180410, end: 20180410
  18. ACETAMINOPHEN [Concomitant]
     Active Substance: ACETAMINOPHEN
     Route: 048
     Dates: start: 20171025, end: 20171025
  19. ACETAMINOPHEN [Concomitant]
     Active Substance: ACETAMINOPHEN
     Route: 048
     Dates: start: 20171122, end: 20171122
  20. ACETAMINOPHEN [Concomitant]
     Active Substance: ACETAMINOPHEN
     Route: 048
     Dates: start: 20171220, end: 20171220
  21. ALLOPURINOL [Concomitant]
     Active Substance: ALLOPURINOL
     Indication: Tumour lysis syndrome
     Dates: start: 20170927
  22. ALLOPURINOL [Concomitant]
     Active Substance: ALLOPURINOL
     Dates: start: 20141003

REACTIONS (1)
  - Vision blurred [Not Recovered/Not Resolved]

NARRATIVE: CASE EVENT DATE: 20171113
